FAERS Safety Report 6748717-8 (Version None)
Quarter: 2010Q2

REPORT INFORMATION
  Report Type: 
  Country: None (occurrence: None)
  Receive Date: 20100601
  Receipt Date: 20100518
  Transmission Date: 20101027
  Serious: Yes (Other)
  Sender: FDA-Public Use
  Company Number: PHHY2010US32304

PATIENT
  Sex: Male

DRUGS (1)
  1. EXFORGE [Suspect]
     Dosage: UNK

REACTIONS (5)
  - BURNS SECOND DEGREE [None]
  - PRURITUS [None]
  - RASH [None]
  - RASH MORBILLIFORM [None]
  - SKIN EXFOLIATION [None]
